FAERS Safety Report 23274806 (Version 1)
Quarter: 2023Q4

REPORT INFORMATION
  Report Type: Spontaneous
  Country: US (occurrence: US)
  Receive Date: 20231208
  Receipt Date: 20231208
  Transmission Date: 20240110
  Serious: No
  Sender: FDA-Public Use
  Company Number: US-PHARMAESSENTIA CORPORATION-US-2023-PEC-002158

PATIENT
  Sex: Female

DRUGS (1)
  1. BESREMI [Suspect]
     Active Substance: ROPEGINTERFERON ALFA-2B-NJFT
     Indication: Polycythaemia vera
     Dosage: 100 MCG, Q2W
     Route: 058
     Dates: start: 20230223

REACTIONS (16)
  - Heart rate increased [Unknown]
  - Tongue disorder [Unknown]
  - Tongue discolouration [Unknown]
  - Osteoarthritis [Unknown]
  - Illness [Not Recovered/Not Resolved]
  - Nail discolouration [Unknown]
  - Tongue dry [Unknown]
  - Weight decreased [Unknown]
  - Blood pressure increased [Unknown]
  - Asthenia [Unknown]
  - Decreased appetite [Not Recovered/Not Resolved]
  - Constipation [Unknown]
  - Dry mouth [Not Recovered/Not Resolved]
  - Fatigue [Unknown]
  - Bone pain [Unknown]
  - Pyrexia [Unknown]
